FAERS Safety Report 25599768 (Version 1)
Quarter: 2025Q3

REPORT INFORMATION
  Report Type: Spontaneous
  Country: EU (occurrence: EU)
  Receive Date: 20250724
  Receipt Date: 20250724
  Transmission Date: 20251020
  Serious: Yes (Hospitalization, Other)
  Sender: AUROBINDO
  Company Number: EU-AFSSAPS-LY2025001163

PATIENT
  Age: 66 Year
  Sex: Male
  Weight: 93 kg

DRUGS (4)
  1. AMOXICILLIN [Suspect]
     Active Substance: AMOXICILLIN
     Indication: Helicobacter infection
     Dosage: 3 GRAM, ONCE A DAY
     Route: 048
     Dates: start: 20250401, end: 20250408
  2. CLARITHROMYCIN [Suspect]
     Active Substance: CLARITHROMYCIN
     Indication: Helicobacter infection
     Dosage: 1 GRAM, ONCE A DAY
     Route: 048
     Dates: start: 20250401, end: 20250408
  3. METRONIDAZOLE [Suspect]
     Active Substance: METRONIDAZOLE
     Indication: Helicobacter infection
     Dosage: 1 GRAM, ONCE A DAY
     Route: 048
     Dates: start: 20250401, end: 20250408
  4. WARFARIN [Concomitant]
     Active Substance: WARFARIN
     Indication: Product used for unknown indication
     Route: 065

REACTIONS (1)
  - Delirium [Not Recovered/Not Resolved]

NARRATIVE: CASE EVENT DATE: 20250402
